FAERS Safety Report 5481997-8 (Version None)
Quarter: 2007Q4

REPORT INFORMATION
  Report Type: 
  Country: None (occurrence: None)
  Receive Date: 20071005
  Receipt Date: 20070910
  Transmission Date: 20080405
  Serious: Yes (Hospitalization)
  Sender: FDA-Public Use
  Company Number: 2007001306

PATIENT
  Age: 71 Year
  Sex: Female
  Weight: 75.7 kg

DRUGS (13)
  1. ERLOTINIB (TABLET) [Suspect]
     Indication: OESOPHAGEAL CARCINOMA
     Dosage: 100 MG
     Dates: start: 20070702
  2. BEVACIZUMAB (INJECTION FOR INFUSION) [Suspect]
     Indication: OESOPHAGEAL CARCINOMA
     Dosage: 15 MG/KG, INTRAVENOUS
     Route: 042
     Dates: start: 20070702
  3. PACLITAXEL [Concomitant]
  4. CARBOPLATIN [Concomitant]
  5. FLUOROURACIL [Concomitant]
  6. RADIATION THERAPY [Concomitant]
  7. ACIPHEX [Concomitant]
  8. IMITREX [Concomitant]
  9. NAPROXEN [Concomitant]
  10. MULTIVITAMIN [Concomitant]
  11. VITAMIN C (ASCORBID ACID) [Concomitant]
  12. CALCIUM (CALCIUM) [Concomitant]
  13. OMEGA 3 (FISH OIL) [Concomitant]

REACTIONS (13)
  - BLOOD CHLORIDE DECREASED [None]
  - BLOOD GLUCOSE INCREASED [None]
  - BLOOD SODIUM DECREASED [None]
  - DIARRHOEA [None]
  - HAEMOGLOBIN DECREASED [None]
  - HEART RATE INCREASED [None]
  - LEUKOPENIA [None]
  - MUCOSAL INFLAMMATION [None]
  - NEUTROPHIL COUNT DECREASED [None]
  - PYREXIA [None]
  - RED BLOOD CELL COUNT DECREASED [None]
  - THROMBOCYTOPENIA [None]
  - VOMITING [None]
